FAERS Safety Report 4932648-X (Version None)
Quarter: 2006Q1

REPORT INFORMATION
  Report Type: 
  Country: None (occurrence: None)
  Receive Date: 20060301
  Receipt Date: 20060224
  Transmission Date: 20060701
  Serious: Yes (Death)
  Sender: FDA-Public Use
  Company Number: 2005-04405

PATIENT
  Age: 79 Year
  Sex: Female
  Weight: 60 kg

DRUGS (1)
  1. KENTERA (WATSON LABORATORIES)(OXYBUTYNIN) TRANSDERMAL PATCH, 3.9MG [Suspect]
     Indication: URGE INCONTINENCE
     Dosage: 1 PATCH, 2/WEEK, TRANSDERMAL
     Route: 062
     Dates: start: 20050601

REACTIONS (2)
  - BREAST CANCER METASTATIC [None]
  - METASTASES TO LIVER [None]
